FAERS Safety Report 5543140-6 (Version None)
Quarter: 2007Q4

REPORT INFORMATION
  Report Type: 
  Country: None (occurrence: None)
  Receive Date: 20071206
  Receipt Date: 20071121
  Transmission Date: 20080405
  Serious: Yes (Hospitalization)
  Sender: FDA-Public Use
  Company Number: 8028201

PATIENT
  Age: 84 Year
  Sex: Female
  Weight: 55.46 kg

DRUGS (11)
  1. KEPPRA [Suspect]
     Indication: CONVULSION
     Dosage: 500 MG 2/D
     Dates: start: 20050101
  2. LISINOPRIL [Concomitant]
  3. FUROSEMIDE [Concomitant]
  4. METOPROLOL SUCCINATE [Concomitant]
  5. CLONIDINE [Concomitant]
  6. WARFARIN SODIUM [Concomitant]
  7. LANTUS [Concomitant]
  8. ASPIRIN [Concomitant]
  9. LIPITOR [Concomitant]
  10. ZOLOFT [Concomitant]
  11. K-DUR 10 [Concomitant]

REACTIONS (3)
  - CELLULITIS [None]
  - LOSS OF CONTROL OF LEGS [None]
  - PERIPHERAL VASCULAR DISORDER [None]
